FAERS Safety Report 23976096 (Version 2)
Quarter: 2024Q2

REPORT INFORMATION
  Report Type: Report from Study
  Country: CN (occurrence: CN)
  Receive Date: 20240614
  Receipt Date: 20240618
  Transmission Date: 20240715
  Serious: Yes (Death, Life-Threatening, Hospitalization, Other)
  Sender: FDA-Public Use
  Company Number: CN-Accord-429160

PATIENT
  Age: 65 Year
  Sex: Male

DRUGS (2)
  1. CISPLATIN [Suspect]
     Active Substance: CISPLATIN
     Indication: Prostate cancer
     Dosage: 50MG FOR 3 CONSECUTIVE DAYS, AND REPEAT EVERY 4 WEEKS
     Dates: start: 202309
  2. ETOPOSIDE [Suspect]
     Active Substance: ETOPOSIDE
     Indication: Prostate cancer
     Dosage: 150 MG DAILY FOR 3 CONSECUTIVE DAYS, AND REPEAT EVERY 4 WEEKS
     Dates: start: 202309

REACTIONS (2)
  - Myelosuppression [Fatal]
  - Multiple organ dysfunction syndrome [Fatal]

NARRATIVE: CASE EVENT DATE: 20230901
